FAERS Safety Report 8024524-3 (Version None)
Quarter: 2012Q1

REPORT INFORMATION
  Report Type: 
  Country: None (occurrence: None)
  Receive Date: 20120105
  Receipt Date: 20120102
  Transmission Date: 20120608
  Serious: Yes (Other)
  Sender: FDA-Public Use
  Company Number: PHHY2012AR000622

PATIENT
  Sex: Male

DRUGS (1)
  1. EXFORGE [Suspect]
     Indication: HYPERTENSION
     Dosage: UNK UKN, UNK
     Dates: start: 20111001, end: 20111107

REACTIONS (4)
  - DEHYDRATION [None]
  - BALANCE DISORDER [None]
  - SENSORY LOSS [None]
  - CEREBROVASCULAR ACCIDENT [None]
